FAERS Safety Report 8138783-X (Version None)
Quarter: 2012Q1

REPORT INFORMATION
  Report Type: 
  Country: None (occurrence: None)
  Receive Date: 20120215
  Receipt Date: 20120215
  Transmission Date: 20120608
  Serious: Yes (Other)
  Sender: FDA-Public Use
  Company Number: DE-GLAXOSMITHKLINE-D0072670A

PATIENT
  Sex: Male

DRUGS (3)
  1. OXCARBAZEPINE [Concomitant]
     Dosage: 2400MG PER DAY
     Route: 065
  2. TROBALT [Suspect]
     Dosage: 100MG THREE TIMES PER DAY
     Route: 065
  3. GABAPENTIN [Concomitant]
     Dosage: 2400MG PER DAY
     Route: 065

REACTIONS (5)
  - APHASIA [None]
  - CONFUSIONAL STATE [None]
  - COORDINATION ABNORMAL [None]
  - FATIGUE [None]
  - ASTHENIA [None]
